FAERS Safety Report 21251197 (Version 1)
Quarter: 2022Q3

REPORT INFORMATION
  Report Type: Spontaneous
  Country: CN (occurrence: CN)
  Receive Date: 20220825
  Receipt Date: 20220825
  Transmission Date: 20221026
  Serious: Yes (Hospitalization, Other)
  Sender: FDA-Public Use
  Company Number: None

PATIENT
  Age: 66 Year
  Sex: Female
  Weight: 57.5 kg

DRUGS (6)
  1. CYCLOPHOSPHAMIDE [Suspect]
     Active Substance: CYCLOPHOSPHAMIDE
     Indication: B-cell lymphoma
     Dosage: 400 MG, QD, POWDER INJECTION, DILUTED WITH NS (250 ML)
     Route: 041
     Dates: start: 20220627, end: 20220628
  2. SODIUM CHLORIDE [Suspect]
     Active Substance: SODIUM CHLORIDE
     Indication: Medication dilution
     Dosage: 250 ML, QD, DILUTED WITH CYCLOPHOSPHAMIDE FOR INJECTION (400 MG)
     Route: 041
     Dates: start: 20220627, end: 20220628
  3. SODIUM CHLORIDE [Suspect]
     Active Substance: SODIUM CHLORIDE
     Dosage: 250 ML, QD, DILUTED WITH DOXORUBICIN HYDROCHLORIDE FOR INJECTION (30 MG)
     Route: 041
     Dates: start: 20220627, end: 20220628
  4. SODIUM CHLORIDE [Suspect]
     Active Substance: SODIUM CHLORIDE
     Dosage: 100 ML, QD, VINCRISTINE SULFATE FOR INJECTION (1.4 MG)
     Route: 041
     Dates: start: 20220627, end: 20220627
  5. DOXORUBICIN HYDROCHLORIDE [Suspect]
     Active Substance: DOXORUBICIN HYDROCHLORIDE
     Indication: B-cell lymphoma
     Dosage: 30 MG, QD, DILUTED WITH NS (250 ML)
     Route: 041
     Dates: start: 20220627, end: 20220628
  6. VINCRISTINE SULFATE [Suspect]
     Active Substance: VINCRISTINE SULFATE
     Indication: B-cell lymphoma
     Dosage: 1.4 MG, QD, DILUTED WITH NS (100 ML)
     Route: 041
     Dates: start: 20220627, end: 20220627

REACTIONS (1)
  - White blood cell count decreased [Recovered/Resolved]

NARRATIVE: CASE EVENT DATE: 20220706
